FAERS Safety Report 9235200 (Version 2)
Quarter: 2013Q2

REPORT INFORMATION
  Report Type: Spontaneous
  Country: US (occurrence: US)
  Receive Date: 20130417
  Receipt Date: 20130517
  Transmission Date: 20140414
  Serious: No
  Sender: FDA-Public Use
  Company Number: US-MERCK-1304USA006443

PATIENT
  Age: 89 Year
  Sex: Female

DRUGS (1)
  1. ZETIA [Suspect]
     Indication: LIPIDS INCREASED
     Dosage: 10 MG, QD

REACTIONS (3)
  - Incorrect route of drug administration [Unknown]
  - Drug administration error [Unknown]
  - No adverse event [Unknown]
